FAERS Safety Report 10188191 (Version 2)
Quarter: 2014Q2

REPORT INFORMATION
  Report Type: Spontaneous
  Country: CN (occurrence: CN)
  Receive Date: 20140522
  Receipt Date: 20140522
  Transmission Date: 20141212
  Serious: Yes (Hospitalization, Other)
  Sender: FDA-Public Use
  Company Number: CN-ROCHE-1396043

PATIENT
  Age: 44 Year
  Sex: Female

DRUGS (4)
  1. TRASTUZUMAB [Suspect]
     Indication: BREAST CANCER
     Dosage: 7 DAYS CYCLE
     Route: 065
     Dates: start: 201106, end: 201202
  2. TRASTUZUMAB [Suspect]
     Dosage: 21 DAYS CYCLE
     Route: 065
     Dates: start: 201202, end: 201302
  3. PIRARUBICIN [Suspect]
     Indication: BREAST CANCER
     Route: 065
     Dates: start: 201010
  4. PACLITAXEL [Concomitant]
     Indication: BREAST CANCER
     Route: 065
     Dates: start: 201106

REACTIONS (9)
  - Pleural effusion [Recovered/Resolved]
  - Ejection fraction decreased [Recovered/Resolved]
  - Chest discomfort [Recovered/Resolved]
  - Oedema peripheral [Recovered/Resolved]
  - Dyspnoea [Recovered/Resolved]
  - Pericardial effusion [Recovered/Resolved]
  - Cardiomegaly [Unknown]
  - Mitral valve incompetence [Unknown]
  - Tricuspid valve incompetence [Unknown]
